FAERS Safety Report 9631068 (Version 1)
Quarter: 2013Q4

REPORT INFORMATION
  Report Type: Spontaneous
  Country: US (occurrence: None)
  Receive Date: 20131016
  Receipt Date: 20131016
  Transmission Date: 20140711
  Serious: Yes (Other)
  Sender: FDA-Public Use
  Company Number: None

PATIENT
  Age: 38 Year
  Sex: Female
  Weight: 105.24 kg

DRUGS (1)
  1. DEPO-MEDROL [Suspect]
     Indication: HYPERSENSITIVITY
     Dosage: 80MG 1 NO
     Dates: start: 20130707

REACTIONS (3)
  - Pain in extremity [None]
  - Gait disturbance [None]
  - Weight bearing difficulty [None]
